FAERS Safety Report 7222627-4 (Version None)
Quarter: 2011Q1

REPORT INFORMATION
  Report Type: 
  Country: None (occurrence: None)
  Receive Date: 20110106
  Receipt Date: 20110106
  Transmission Date: 20110831
  Serious: Yes (Death)
  Sender: FDA-Public Use
  Company Number: None

PATIENT
  Sex: Male

DRUGS (1)
  1. CLOZAPINE [Suspect]
     Indication: SCHIZOPHRENIA, PARANOID TYPE
     Dosage: 300MG 3 TIMES PER DAY PO (DURATION: YEARS)
     Route: 048

REACTIONS (3)
  - SEPTIC SHOCK [None]
  - UNRESPONSIVE TO STIMULI [None]
  - RENAL FAILURE ACUTE [None]
